FAERS Safety Report 5726282-1 (Version None)
Quarter: 2008Q2

REPORT INFORMATION
  Report Type: 
  Country: None (occurrence: None)
  Receive Date: 20080501
  Receipt Date: 20080501
  Transmission Date: 20081010
  Serious: Yes (Death)
  Sender: FDA-Public Use
  Company Number: None

PATIENT
  Age: 26 Year
  Sex: Female
  Weight: 55 kg

DRUGS (5)
  1. LAMIVUDINE [Suspect]
     Indication: HIV INFECTION
     Dosage: 300MG  BID  ORAL
     Route: 048
     Dates: start: 20070314, end: 20080125
  2. STAVUDINE [Suspect]
     Indication: HIV INFECTION
     Dosage: 60MG  BID  ORAL
     Route: 048
     Dates: start: 20070314, end: 20080125
  3. EFAVIRENZ [Suspect]
     Indication: HIV INFECTION
     Dosage: 600MG  ONCE A DAY  ORAL
     Route: 048
     Dates: start: 20070314, end: 20080125
  4. AKURIT 4 [Suspect]
     Indication: HIV INFECTION
     Dosage: 375/187.5/687.5./100 MG  DAILY  ORAL
     Route: 048
     Dates: start: 20061206, end: 20070308
  5. AKURIT [Suspect]
     Indication: HIV INFECTION
     Dates: start: 20070309, end: 20070607

REACTIONS (7)
  - HYPOAESTHESIA [None]
  - HYPOTONIA [None]
  - LACTIC ACIDOSIS [None]
  - MITOCHONDRIAL TOXICITY [None]
  - REFUSAL OF TREATMENT BY RELATIVE [None]
  - RESPIRATORY DISTRESS [None]
  - VOMITING [None]
